FAERS Safety Report 13458269 (Version 2)
Quarter: 2017Q2

REPORT INFORMATION
  Report Type: Report from Study
  Country: JP (occurrence: JP)
  Receive Date: 20170419
  Receipt Date: 20170517
  Transmission Date: 20170830
  Serious: Yes (Hospitalization, Disabling)
  Sender: FDA-Public Use
  Company Number: JP-ASTRAZENECA-2017SE39952

PATIENT
  Age: 72 Year
  Sex: Male
  Weight: 61 kg

DRUGS (2)
  1. TAGRISSO [Suspect]
     Active Substance: OSIMERTINIB
     Indication: NON-SMALL CELL LUNG CANCER
     Route: 048
     Dates: start: 20170224, end: 20170327
  2. OPDIVO [Suspect]
     Active Substance: NIVOLUMAB
     Indication: NON-SMALL CELL LUNG CANCER
     Dosage: DOSE UNKNOWN
     Route: 065
     Dates: start: 20160126, end: 20161220

REACTIONS (1)
  - Drug-induced liver injury [Not Recovered/Not Resolved]

NARRATIVE: CASE EVENT DATE: 20170329
